FAERS Safety Report 7581577-4 (Version None)
Quarter: 2011Q2

REPORT INFORMATION
  Report Type: 
  Country: None (occurrence: None)
  Receive Date: 20110629
  Receipt Date: 20110623
  Transmission Date: 20111010
  Serious: Yes (Other)
  Sender: FDA-Public Use
  Company Number: PHHY2011JP56386

PATIENT
  Weight: 2 kg

DRUGS (1)
  1. NEORAL [Suspect]
     Route: 064

REACTIONS (2)
  - JAUNDICE NEONATAL [None]
  - DRUG EXPOSURE DURING PREGNANCY [None]
